FAERS Safety Report 10995050 (Version 2)
Quarter: 2015Q3

REPORT INFORMATION
  Report Type: Spontaneous
  Country: US (occurrence: US)
  Receive Date: 20150407
  Receipt Date: 20150708
  Transmission Date: 20151125
  Serious: No
  Sender: FDA-Public Use
  Company Number: US-GLAXOSMITHKLINE-US2015045683

PATIENT
  Age: 60 Year
  Sex: Female

DRUGS (1)
  1. NICODERM CQ [Suspect]
     Active Substance: NICOTINE
     Indication: SMOKING CESSATION THERAPY
     Dosage: 21 MG, UNK
     Dates: start: 201406, end: 201407

REACTIONS (6)
  - Application site pruritus [Recovered/Resolved]
  - Drug administration error [Unknown]
  - Drug ineffective [Unknown]
  - Application site swelling [Recovered/Resolved]
  - Product quality issue [Unknown]
  - Application site reaction [Recovered/Resolved]

NARRATIVE: CASE EVENT DATE: 201407
